FAERS Safety Report 8070544-2 (Version None)
Quarter: 2012Q1

REPORT INFORMATION
  Report Type: 
  Country: None (occurrence: None)
  Receive Date: 20120125
  Receipt Date: 20120113
  Transmission Date: 20120608
  Serious: Yes (Hospitalization)
  Sender: FDA-Public Use
  Company Number: DE-ELI_LILLY_AND_COMPANY-DE201111006863

PATIENT
  Sex: Female
  Weight: 82.5 kg

DRUGS (11)
  1. PANTOPRAZOLE [Concomitant]
     Dosage: UNK
  2. METAMIZOLE [Concomitant]
     Dosage: UNK
  3. ONDANSETRON [Concomitant]
     Dosage: UNK
  4. ENOXAPARIN [Concomitant]
     Dosage: 0.4 MG, UNK
     Route: 058
     Dates: start: 20111118
  5. FENTANYL [Concomitant]
     Dosage: UNK
  6. POLYETHYLENE GLYCOL [Concomitant]
  7. GEMCITABINE HYDROCHLORIDE [Suspect]
     Indication: NON-SMALL CELL LUNG CANCER
     Dosage: 2415 MG, OTHER
     Dates: start: 20111116, end: 20111116
  8. CISPLATIN [Suspect]
     Indication: NON-SMALL CELL LUNG CANCER
     Dosage: 145 MG, OTHER
     Dates: start: 20111116, end: 20111116
  9. CISPLATIN [Suspect]
     Dosage: UNK
     Dates: start: 20111207
  10. GEMCITABINE HYDROCHLORIDE [Suspect]
     Dosage: UNK
     Dates: start: 20111207
  11. METOCLOPRAMIDE [Concomitant]
     Dosage: UNK

REACTIONS (1)
  - HYPOKALAEMIA [None]
